FAERS Safety Report 9564825 (Version 2)
Quarter: 2013Q3

REPORT INFORMATION
  Report Type: Report from Study
  Country: CA (occurrence: CA)
  Receive Date: 20130930
  Receipt Date: 20130930
  Transmission Date: 20140515
  Serious: Yes (Death)
  Sender: FDA-Public Use
  Company Number: PHHY2013CA088514

PATIENT
  Age: 65 Year
  Sex: Male

DRUGS (1)
  1. SANDOSTATIN LAR [Suspect]
     Indication: SUBILEUS
     Dosage: 20 MG, ONCE A MONTH
     Route: 030
     Dates: start: 20130724, end: 20130724

REACTIONS (1)
  - Death [Fatal]
